FAERS Safety Report 4933057-X (Version None)
Quarter: 2006Q1

REPORT INFORMATION
  Report Type: 
  Country: None (occurrence: None)
  Receive Date: 20060306
  Receipt Date: 20060223
  Transmission Date: 20060701
  Serious: Yes (Disabling)
  Sender: FDA-Public Use
  Company Number: PHBS2006IT03150

PATIENT
  Age: 62 Year
  Sex: Female

DRUGS (8)
  1. ZOMETA [Suspect]
     Indication: METASTASES TO BONE
     Dosage: 4 MG, QMO
     Route: 042
     Dates: start: 20020604, end: 20050921
  2. AREDIA [Suspect]
     Indication: METASTASES TO BONE
     Dosage: 90 MG, QMO
     Route: 042
     Dates: start: 20000309, end: 20050507
  3. CLASTEON [Suspect]
     Indication: METASTASES TO BONE
     Dosage: 100 MG, UNK
     Route: 030
     Dates: start: 19970321, end: 20000308
  4. VINORELBINE [Concomitant]
  5. GLUCOPHAGE [Concomitant]
  6. SOLOSA [Concomitant]
  7. ARIMIDEX [Concomitant]
  8. FARLUTAL [Concomitant]

REACTIONS (3)
  - BONE DISORDER [None]
  - OSTEONECROSIS [None]
  - TOOTH ABSCESS [None]
